FAERS Safety Report 23454706 (Version 2)
Quarter: 2024Q1

REPORT INFORMATION
  Report Type: Spontaneous
  Country: US (occurrence: US)
  Receive Date: 20240130
  Receipt Date: 20240329
  Transmission Date: 20240409
  Serious: Yes (Other)
  Sender: FDA-Public Use
  Company Number: US-CIPLA LTD.-2024US00778

PATIENT

DRUGS (12)
  1. ALBUTEROL [Suspect]
     Active Substance: ALBUTEROL
     Indication: Asthma
     Dosage: 1 TO 2 PUFFS, (EVERY 4 HOURS) PRN (INHALER 1)
     Dates: start: 202303, end: 202312
  2. ALBUTEROL [Suspect]
     Active Substance: ALBUTEROL
     Dosage: 1 TO 2 PUFFS, (EVERY 4 HOURS) PRN (INHALER 2)
     Dates: start: 2023, end: 202312
  3. ALBUTEROL [Suspect]
     Active Substance: ALBUTEROL
     Dosage: 1 TO 2 PUFFS, (EVERY 4 HOURS) PRN (INHALER 3)
     Dates: start: 2023, end: 202312
  4. ALBUTEROL [Suspect]
     Active Substance: ALBUTEROL
     Dosage: 1 TO 2 PUFFS, (EVERY 4 HOURS) PRN (INHALER 4)
     Dates: start: 2023, end: 202312
  5. ALBUTEROL [Suspect]
     Active Substance: ALBUTEROL
     Dosage: 1 TO 2 PUFFS, (EVERY 4 HOURS) PRN (INHALER 5)
     Dates: start: 2023, end: 202312
  6. ALBUTEROL [Suspect]
     Active Substance: ALBUTEROL
     Dosage: 1 TO 2 PUFFS, (EVERY 4 HOURS) PRN (INHALER 6)
     Dates: start: 2023, end: 202312
  7. ALBUTEROL [Suspect]
     Active Substance: ALBUTEROL
     Dosage: 1 TO 2 PUFFS, (EVERY 4 HOURS) PRN (INHALER 7)
     Dates: start: 2023, end: 202312
  8. ALBUTEROL [Suspect]
     Active Substance: ALBUTEROL
     Dosage: 1 TO 2 PUFFS, (EVERY 4 HOURS) PRN (INHALER 8)
     Dates: start: 2023, end: 202312
  9. SYMBICORT [Concomitant]
     Active Substance: BUDESONIDE\FORMOTEROL FUMARATE DIHYDRATE
     Indication: Pneumonia
     Dosage: UNK, PRN
     Route: 065
  10. PROVENTIL [Concomitant]
     Active Substance: ALBUTEROL
     Indication: Asthma
     Dosage: UNK
     Route: 065
  11. ALBUTEROL SULFATE [Concomitant]
     Active Substance: ALBUTEROL SULFATE
     Indication: Asthma
     Dosage: UNK
     Route: 065
  12. PROAIR HFA [Concomitant]
     Active Substance: ALBUTEROL SULFATE
     Indication: Asthma
     Dosage: UNK
     Route: 065

REACTIONS (5)
  - Choking [Unknown]
  - Device delivery system issue [Unknown]
  - Device leakage [Unknown]
  - Drug ineffective [Unknown]
  - Device issue [Unknown]

NARRATIVE: CASE EVENT DATE: 20230101
